FAERS Safety Report 6551738-1 (Version None)
Quarter: 2010Q1

REPORT INFORMATION
  Report Type: 
  Country: None (occurrence: None)
  Receive Date: 20100120
  Receipt Date: 20100105
  Transmission Date: 20100710
  Serious: Yes (Life-Threatening, Disabling, Other)
  Sender: FDA-Public Use
  Company Number: 8027785

PATIENT
  Sex: Female
  Weight: 57.5 kg

DRUGS (10)
  1. KEPPRA [Suspect]
     Indication: EPILEPSY
     Dosage: (4 G), (4.5 G QOD), (3G BID, 2GR AM-2.5GR NIGHTLY, DAILY), (2 G BID)
     Dates: start: 20011022, end: 20020213
  2. KEPPRA [Suspect]
     Indication: EPILEPSY
     Dosage: (4 G), (4.5 G QOD), (3G BID, 2GR AM-2.5GR NIGHTLY, DAILY), (2 G BID)
     Dates: start: 20020214, end: 20060605
  3. KEPPRA [Suspect]
     Indication: EPILEPSY
     Dosage: (4 G), (4.5 G QOD), (3G BID, 2GR AM-2.5GR NIGHTLY, DAILY), (2 G BID)
     Dates: start: 20060606, end: 20071102
  4. KEPPRA [Suspect]
     Indication: EPILEPSY
     Dosage: (4 G), (4.5 G QOD), (3G BID, 2GR AM-2.5GR NIGHTLY, DAILY), (2 G BID)
     Dates: start: 20010101
  5. ASPIRIN [Concomitant]
  6. TOPIRAMATE [Concomitant]
  7. NORETHISTERONE [Concomitant]
  8. ZONISAMIDE [Concomitant]
  9. LEVOTHYROXINE SODIUM [Concomitant]
  10. CLOBAZAM [Concomitant]

REACTIONS (18)
  - AMNESIA [None]
  - ASTHENIA [None]
  - CONFUSIONAL STATE [None]
  - CONVULSION [None]
  - DEEP VEIN THROMBOSIS [None]
  - DISTURBANCE IN ATTENTION [None]
  - FATIGUE [None]
  - GASTROINTESTINAL DISORDER [None]
  - HYPOTONIA [None]
  - INCORRECT DOSE ADMINISTERED [None]
  - LETHARGY [None]
  - MEDICATION ERROR [None]
  - MOOD SWINGS [None]
  - PULMONARY EMBOLISM [None]
  - SLEEP DISORDER [None]
  - SOMNOLENCE [None]
  - SPINAL FRACTURE [None]
  - WEIGHT DECREASED [None]
